FAERS Safety Report 14752548 (Version 1)
Quarter: 2018Q2

REPORT INFORMATION
  Report Type: Spontaneous
  Country: JP (occurrence: JP)
  Receive Date: 20180412
  Receipt Date: 20180412
  Transmission Date: 20180711
  Serious: Yes (Hospitalization)
  Sender: FDA-Public Use
  Company Number: JP-JNJFOC-20171232963

PATIENT
  Age: 64 Year
  Sex: Male
  Weight: 67 kg

DRUGS (25)
  1. BELSOMRA [Concomitant]
     Active Substance: SUVOREXANT
     Route: 048
  2. JANUVIA [Concomitant]
     Active Substance: SITAGLIPTIN PHOSPHATE
     Route: 048
  3. HALOMONTH [Suspect]
     Active Substance: HALOPERIDOL DECANOATE
     Indication: SCHIZOPHRENIA
     Route: 030
     Dates: start: 20171102, end: 20171222
  4. DANTRIUM [Concomitant]
     Active Substance: DANTROLENE SODIUM
     Route: 065
     Dates: start: 20171222
  5. SODIUM VALPROATE [Concomitant]
     Active Substance: VALPROATE SODIUM
     Indication: PRODUCT USED FOR UNKNOWN INDICATION
     Dosage: TRADE NAME: VALERIN
     Route: 048
  6. DAIKENCHUTO [Concomitant]
     Active Substance: HERBALS
     Route: 048
  7. AMARYL [Concomitant]
     Active Substance: GLIMEPIRIDE
     Route: 048
  8. OMEPRAZOLE. [Concomitant]
     Active Substance: OMEPRAZOLE
     Route: 065
     Dates: start: 20171220, end: 20171223
  9. TRIHEXIN                           /00220101/ [Concomitant]
     Route: 048
  10. MERISLON [Concomitant]
     Active Substance: BETAHISTINE MESILATE
     Route: 048
  11. HUMULIN NOS [Concomitant]
     Active Substance: INSULIN HUMAN
     Route: 065
     Dates: start: 20171220, end: 20171223
  12. KENKETU GLOVENIN-I [Concomitant]
     Active Substance: HUMAN IMMUNOGLOBULIN G
     Route: 065
     Dates: start: 20171220, end: 20171223
  13. TAKEPRON [Concomitant]
     Active Substance: LANSOPRAZOLE
     Route: 048
  14. CONTOMIN [Suspect]
     Active Substance: CHLORPROMAZINE
     Indication: PRODUCT USED FOR UNKNOWN INDICATION
     Route: 048
  15. MEROPENEM. [Concomitant]
     Active Substance: MEROPENEM
     Route: 065
     Dates: start: 20171220, end: 20171223
  16. MIDAZOLAM [Concomitant]
     Active Substance: MIDAZOLAM HYDROCHLORIDE
     Route: 065
     Dates: start: 20171222
  17. PHENOBARBITAL. [Concomitant]
     Active Substance: PHENOBARBITAL
     Route: 048
  18. MEXITIL [Concomitant]
     Active Substance: MEXILETINE HYDROCHLORIDE
     Route: 048
  19. ZOTEPINE [Suspect]
     Active Substance: ZOTEPINE
     Indication: PRODUCT USED FOR UNKNOWN INDICATION
     Route: 048
  20. LONASEN [Concomitant]
     Active Substance: BLONANSERIN
     Indication: PRODUCT USED FOR UNKNOWN INDICATION
     Route: 048
  21. MAGNESIUM OXIDE. [Concomitant]
     Active Substance: MAGNESIUM OXIDE
     Route: 048
  22. ACICLOVIR [Concomitant]
     Active Substance: ACYCLOVIR
     Route: 065
     Dates: start: 20171222
  23. LOSIZOPILON [Concomitant]
     Active Substance: ZOTEPINE
     Route: 048
  24. HALCION [Concomitant]
     Active Substance: TRIAZOLAM
     Route: 048
  25. BETANIS [Concomitant]
     Active Substance: MIRABEGRON
     Route: 048

REACTIONS (4)
  - Pneumonia [Unknown]
  - Neuroleptic malignant syndrome [Recovered/Resolved]
  - Renal failure [Unknown]
  - Hyperglycaemic hyperosmolar nonketotic syndrome [Unknown]

NARRATIVE: CASE EVENT DATE: 201712
